FAERS Safety Report 7208426-8 (Version None)
Quarter: 2010Q4

REPORT INFORMATION
  Report Type: 
  Country: None (occurrence: None)
  Receive Date: 20101230
  Receipt Date: 20101230
  Transmission Date: 20110411
  Serious: Yes (Other)
  Sender: FDA-Public Use
  Company Number: None

PATIENT
  Sex: Female
  Weight: 67.586 kg

DRUGS (1)
  1. DARVOCET-N 100 [Suspect]
     Indication: BACK PAIN
     Dosage: 1-2 EVERY 4 HRS
     Dates: start: 19850101, end: 20100101

REACTIONS (3)
  - DIZZINESS [None]
  - HEART RATE IRREGULAR [None]
  - PRESYNCOPE [None]
